FAERS Safety Report 7248217-5 (Version None)
Quarter: 2011Q1

REPORT INFORMATION
  Report Type: 
  Country: None (occurrence: None)
  Receive Date: 20110127
  Receipt Date: 20100624
  Transmission Date: 20110831
  Serious: Yes (Hospitalization, Other)
  Sender: FDA-Public Use
  Company Number: US-BAYER-200935529NA

PATIENT
  Sex: Female
  Weight: 60.317 kg

DRUGS (8)
  1. CLINDAMYCIN [Concomitant]
     Indication: ACNE
     Dosage: UNK
     Route: 048
     Dates: start: 20090917
  2. YASMIN [Suspect]
     Indication: CONTRACEPTION
     Dosage: UNK UNK, QD
     Route: 048
     Dates: start: 20070503, end: 20080101
  3. OCELLA [Suspect]
     Indication: ACNE
     Dosage: UNK
     Dates: start: 20090501, end: 20090901
  4. SPIRONOLACTONE [Concomitant]
     Indication: ACNE
     Dosage: UNK
     Route: 048
     Dates: start: 20090101
  5. YAZ [Suspect]
     Dosage: UNK
     Dates: start: 20090101
  6. YASMIN [Suspect]
     Indication: ACNE
     Dosage: UNK
     Dates: end: 20090101
  7. OCELLA [Suspect]
     Indication: CONTRACEPTION
     Dosage: UNK
     Dates: start: 20080701
  8. DOXYCYCLINE [Concomitant]
     Indication: ACNE
     Dosage: UNK
     Route: 048
     Dates: start: 20090417

REACTIONS (5)
  - MIGRAINE [None]
  - HYPOAESTHESIA [None]
  - DEEP VEIN THROMBOSIS [None]
  - PAIN IN EXTREMITY [None]
  - PULMONARY EMBOLISM [None]
